FAERS Safety Report 9188204 (Version 1)
Quarter: 2013Q1

REPORT INFORMATION
  Report Type: Spontaneous
  Country: US (occurrence: US)
  Receive Date: 20130325
  Receipt Date: 20130325
  Transmission Date: 20140127
  Serious: Yes (Hospitalization)
  Sender: FDA-Public Use
  Company Number: US-SANOFI-AVENTIS-2013SA029176

PATIENT
  Age: 66 Year
  Sex: Male

DRUGS (4)
  1. LANTUS SOLOSTAR [Suspect]
     Indication: DIABETES MELLITUS
     Dosage: TAKEN FROM- 15 YEARS AGO, DOSE-45-50
     Route: 065
  2. LANTUS SOLOSTAR [Suspect]
     Indication: DIABETES MELLITUS
     Dosage: TAKEN FROM- 15 YEARS AGO, DOSE-45-50
     Route: 065
  3. SOLOSTAR [Suspect]
     Indication: DIABETES MELLITUS
     Dosage: TAKEN FROM- 15 YEARS AGO
  4. SOLOSTAR [Suspect]
     Indication: DIABETES MELLITUS
     Dosage: TAKEN FROM- 15 YEARS AGO

REACTIONS (2)
  - Pneumonia [Unknown]
  - Bronchitis [Unknown]
